FAERS Safety Report 10271974 (Version 1)
Quarter: 2014Q3

REPORT INFORMATION
  Report Type: Spontaneous
  Country: US (occurrence: US)
  Receive Date: 20140702
  Receipt Date: 20140702
  Transmission Date: 20150326
  Serious: Yes (Hospitalization)
  Sender: FDA-Public Use
  Company Number: PHHY2014US080183

PATIENT

DRUGS (4)
  1. MYCOPHENOLATE [Suspect]
     Active Substance: MYCOPHENOLIC ACID
     Indication: SYSTEMIC LUPUS ERYTHEMATOSUS
  2. CYCLOPHOSPHAMIDE. [Suspect]
     Active Substance: CYCLOPHOSPHAMIDE
     Indication: SYSTEMIC LUPUS ERYTHEMATOSUS
  3. METHYLPREDNISOLONE [Suspect]
     Active Substance: METHYLPREDNISOLONE
     Indication: SYSTEMIC LUPUS ERYTHEMATOSUS
  4. ASPIRIN. [Suspect]
     Active Substance: ASPIRIN

REACTIONS (7)
  - Pancytopenia [Unknown]
  - Pyrexia [Unknown]
  - Drug ineffective [Unknown]
  - Histiocytosis haematophagic [Unknown]
  - Interleukin level increased [Unknown]
  - Neurological decompensation [Recovering/Resolving]
  - Serum ferritin increased [Unknown]
